FAERS Safety Report 5788946-3 (Version None)
Quarter: 2008Q2

REPORT INFORMATION
  Report Type: 
  Country: None (occurrence: None)
  Receive Date: 20080626
  Receipt Date: 20080423
  Transmission Date: 20081010
  Serious: No
  Sender: FDA-Public Use
  Company Number: US-ASTRAZENECA-2007UW28659

PATIENT
  Age: 45 Year
  Sex: Male
  Weight: 68 kg

DRUGS (2)
  1. PULMICORT FLEXHALER [Suspect]
     Indication: ASTHMA
     Route: 055
     Dates: start: 20071103
  2. RHINOCORT [Concomitant]
     Route: 045

REACTIONS (1)
  - DYSPNOEA [None]
